FAERS Safety Report 9908307 (Version 1)
Quarter: 2014Q1

REPORT INFORMATION
  Report Type: Spontaneous
  Country: US (occurrence: None)
  Receive Date: 20140214
  Receipt Date: 20140214
  Transmission Date: 20141002
  Serious: Yes (Hospitalization)
  Sender: FDA-Public Use
  Company Number: None

PATIENT
  Sex: Male
  Weight: 97.3 kg

DRUGS (5)
  1. XARELTO [Suspect]
     Indication: ATRIAL FIBRILLATION
     Dosage: RECENT
     Route: 048
  2. HCTZ [Concomitant]
  3. METOPROLOL SUCCINATE [Concomitant]
  4. SIMVASTIN [Concomitant]
  5. FLOMAX [Concomitant]

REACTIONS (2)
  - Haemoptysis [None]
  - Bronchitis [None]
